FAERS Safety Report 9923063 (Version 1)
Quarter: 2014Q1

REPORT INFORMATION
  Report Type: Spontaneous
  Country: US (occurrence: US)
  Receive Date: 20140225
  Receipt Date: 20140225
  Transmission Date: 20141002
  Serious: No
  Sender: FDA-Public Use
  Company Number: US-009507513-1402USA009068

PATIENT
  Sex: Male

DRUGS (1)
  1. NASONEX [Suspect]
     Indication: EAR CONGESTION

REACTIONS (2)
  - Intraocular pressure increased [Unknown]
  - Off label use [Unknown]
